FAERS Safety Report 7938743-5 (Version None)
Quarter: 2011Q4

REPORT INFORMATION
  Report Type: 
  Country: None (occurrence: None)
  Receive Date: 20111124
  Receipt Date: 20111116
  Transmission Date: 20120403
  Serious: No
  Sender: FDA-Public Use
  Company Number: US-BIOGENIDEC-2011BI034395

PATIENT
  Sex: Female

DRUGS (7)
  1. TYSABRI [Suspect]
     Indication: MULTIPLE SCLEROSIS
     Route: 042
     Dates: start: 20100728
  2. ZONEGRAN [Concomitant]
     Indication: EPILEPSY
  3. ZOMIG [Concomitant]
     Indication: MIGRAINE
  4. PROGESTIN INJ [Concomitant]
     Indication: CONTRACEPTION
  5. CAMILA [Concomitant]
     Indication: CONTRACEPTION
     Dates: start: 20110801
  6. KEPPRA [Concomitant]
     Indication: EPILEPSY
  7. MIDRIN [Concomitant]
     Indication: MIGRAINE

REACTIONS (6)
  - MIGRAINE [None]
  - METRORRHAGIA [None]
  - PREMENSTRUAL SYNDROME [None]
  - AMENORRHOEA [None]
  - ANTICONVULSANT DRUG LEVEL INCREASED [None]
  - STRESS [None]
